FAERS Safety Report 15438440 (Version 1)
Quarter: 2018Q3

REPORT INFORMATION
  Report Type: Spontaneous
  Country: US (occurrence: US)
  Receive Date: 20180928
  Receipt Date: 20180928
  Transmission Date: 20181010
  Serious: No
  Sender: FDA-Public Use
  Company Number: US-BIOGEN-2018BI00637107

PATIENT
  Sex: Male

DRUGS (2)
  1. LANOLIN. [Concomitant]
     Active Substance: LANOLIN
     Route: 065
  2. TECFIDERA [Suspect]
     Active Substance: DIMETHYL FUMARATE
     Indication: MULTIPLE SCLEROSIS
     Dosage: TAKE 1 CAPSULE BY MOUTH TWICE A DAY
     Route: 048

REACTIONS (3)
  - Dyspepsia [Recovered/Resolved with Sequelae]
  - Drug dose omission [Unknown]
  - Flushing [Recovered/Resolved with Sequelae]
